FAERS Safety Report 6190701 (Version 3)
Quarter: 2015Q4

REPORT INFORMATION
  Report Type: Spontaneous
  Country: US (occurrence: US)
  Receive Date: 20061218
  Receipt Date: 20151002
  Transmission Date: 20160305
  Serious: Yes (Other)
  Sender: FDA-Public Use
  Company Number: US-AMGEN-KDL188025

PATIENT
  Age: 68 Year
  Sex: Female

DRUGS (3)
  1. ENBREL [Suspect]
     Active Substance: ETANERCEPT
     Indication: RHEUMATOID ARTHRITIS
     Dosage: 50 MG, UNK
     Route: 058
     Dates: start: 1998
  2. METHOTREXATE [Concomitant]
     Active Substance: METHOTREXATE
     Dosage: 7.5 MG, QWK
  3. PREDNISONE. [Suspect]
     Active Substance: PREDNISONE
     Indication: RHEUMATOID ARTHRITIS
     Dosage: UNK
     Route: 065

REACTIONS (9)
  - Transfusion [Unknown]
  - Knee arthroplasty [Unknown]
  - Hepatitis C [Unknown]
  - Increased tendency to bruise [Not Recovered/Not Resolved]
  - Rheumatoid arthritis [Unknown]
  - Osteoporosis [Not Recovered/Not Resolved]
  - Haemorrhage [Unknown]
  - Spinal column stenosis [Not Recovered/Not Resolved]
  - Colectomy [Unknown]

NARRATIVE: CASE EVENT DATE: 2004
